FAERS Safety Report 5084694-6 (Version None)
Quarter: 2006Q3

REPORT INFORMATION
  Report Type: 
  Country: None (occurrence: None)
  Receive Date: 20060818
  Receipt Date: 20060818
  Transmission Date: 20061208
  Serious: Yes (Other)
  Sender: FDA-Public Use
  Company Number: None

PATIENT
  Age: 62 Year
  Sex: Male
  Weight: 106.5953 kg

DRUGS (1)
  1. CLINDAMYCIN [Suspect]
     Indication: TOOTH IMPACTED
     Dosage: 1 TABLET THREE TIMES A DAY PO
     Route: 048
     Dates: start: 20060814, end: 20060815

REACTIONS (5)
  - ANOREXIA [None]
  - BLISTER [None]
  - DIZZINESS [None]
  - SENSATION OF HEAVINESS [None]
  - VISION BLURRED [None]
